FAERS Safety Report 17631805 (Version 1)
Quarter: 2020Q2

REPORT INFORMATION
  Report Type: Spontaneous
  Country: US (occurrence: US)
  Receive Date: 20200406
  Receipt Date: 20200406
  Transmission Date: 20200713
  Serious: Yes (Death)
  Sender: FDA-Public Use
  Company Number: None

PATIENT
  Age: 26 Year
  Sex: Female

DRUGS (7)
  1. GABAPENTIN CAP 300 MG [Concomitant]
  2. METHADONE TAB 10 MG [Concomitant]
  3. VOTRIENT [Suspect]
     Active Substance: PAZOPANIB HYDROCHLORIDE
     Indication: MALIGNANT CONNECTIVE TISSUE NEOPLASM
     Route: 048
     Dates: start: 20200213, end: 20200403
  4. VOTRIENT [Suspect]
     Active Substance: PAZOPANIB HYDROCHLORIDE
     Indication: SOFT TISSUE SARCOMA
     Route: 048
     Dates: start: 20200213, end: 20200403
  5. PROAIR HFA AER [Concomitant]
  6. HYDROMORPHONE TAB 8 MG [Concomitant]
  7. LEVOTHYROXINE TAB 75 MCG [Concomitant]

REACTIONS (1)
  - Death [None]
